FAERS Safety Report 5451859-0 (Version None)
Quarter: 2007Q3

REPORT INFORMATION
  Report Type: 
  Country: None (occurrence: None)
  Receive Date: 20070912
  Receipt Date: 20061025
  Transmission Date: 20080115
  Serious: Yes (Death)
  Sender: FDA-Public Use
  Company Number: 2006VX001900

PATIENT
  Age: 67 Year
  Sex: Male
  Weight: 80 kg

DRUGS (1)
  1. INTERFERON ALFACON -1 (INTERFERON ALFACON-1) [Suspect]
     Indication: HEPATITIS C
     Dosage: 9 MIU; TWI; SC
     Route: 058
     Dates: start: 20060705, end: 20060828

REACTIONS (5)
  - AORTIC DILATATION [None]
  - AORTIC DISSECTION [None]
  - ATRIAL FIBRILLATION [None]
  - BACK PAIN [None]
  - CARDIAC ANEURYSM [None]
